FAERS Safety Report 9752524 (Version 1)
Quarter: 2013Q4

REPORT INFORMATION
  Report Type: Spontaneous
  Country: US (occurrence: None)
  Receive Date: 20131212
  Receipt Date: 20131212
  Transmission Date: 20140711
  Serious: Yes (Hospitalization, Disabling, Other)
  Sender: FDA-Public Use
  Company Number: None

PATIENT
  Age: 78 Year
  Sex: Female
  Weight: 88 kg

DRUGS (16)
  1. XARELTO [Suspect]
     Indication: ARRHYTHMIA
     Dates: start: 20120105, end: 20120329
  2. DILTIAZEM [Concomitant]
  3. METOPROLO [Concomitant]
  4. FUROSEMIDE [Concomitant]
  5. KHOR CHON [Concomitant]
  6. ADULT ASPIRIN [Concomitant]
  7. MULTI-VITAMIN [Concomitant]
  8. VITS [Concomitant]
  9. VITAMIN B6 [Concomitant]
  10. VIT12 [Concomitant]
  11. VIT D [Concomitant]
  12. VIT E [Concomitant]
  13. FISH OIL [Concomitant]
  14. CALCIUM [Concomitant]
  15. ALTACEL [Concomitant]
  16. ALENDRONALE SODIUM [Concomitant]

REACTIONS (6)
  - Cardiovascular disorder [None]
  - Hypoaesthesia [None]
  - Fatigue [None]
  - Herpes zoster [None]
  - Arrhythmia [None]
  - Heart rate increased [None]
